FAERS Safety Report 21163779 (Version 1)
Quarter: 2022Q3

REPORT INFORMATION
  Report Type: Spontaneous
  Country: RO (occurrence: RO)
  Receive Date: 20220803
  Receipt Date: 20220803
  Transmission Date: 20221027
  Serious: Yes (Other)
  Sender: FDA-Public Use
  Company Number: RO-TOLMAR, INC.-22RO035571

PATIENT
  Age: 74 Year
  Sex: Male

DRUGS (4)
  1. ELIGARD [Suspect]
     Active Substance: LEUPROLIDE ACETATE
     Indication: Neuroendocrine carcinoma of prostate
     Dosage: 22.5 MILLIGRAM, Q 3 MONTH
  2. ELIGARD [Suspect]
     Active Substance: LEUPROLIDE ACETATE
     Indication: Prostate cancer
  3. CISPLATIN\ETOPOSIDE [Suspect]
     Active Substance: CISPLATIN\ETOPOSIDE
     Indication: Neuroendocrine carcinoma of prostate
     Dosage: UNK
  4. CISPLATIN\ETOPOSIDE [Suspect]
     Active Substance: CISPLATIN\ETOPOSIDE
     Indication: Prostate cancer

REACTIONS (2)
  - Metastases to bone [Unknown]
  - Prostatic specific antigen abnormal [Unknown]

NARRATIVE: CASE EVENT DATE: 20210601
